FAERS Safety Report 18849268 (Version 2)
Quarter: 2021Q1

REPORT INFORMATION
  Report Type: Spontaneous
  Country: US (occurrence: US)
  Receive Date: 20210204
  Receipt Date: 20210303
  Transmission Date: 20210419
  Serious: Yes (Other)
  Sender: FDA-Public Use
  Company Number: US-GLAXOSMITHKLINE-US2021GSK028974

PATIENT
  Sex: Female

DRUGS (4)
  1. RANITIDINE. [Suspect]
     Active Substance: RANITIDINE
     Indication: OESOPHAGEAL SPASM
     Dosage: 150 MG, QD
     Route: 065
     Dates: start: 201906, end: 201910
  2. ZANTAC [Suspect]
     Active Substance: RANITIDINE HYDROCHLORIDE
     Indication: OESOPHAGEAL SPASM
     Dosage: 150 MG, QD
     Route: 065
     Dates: start: 201701, end: 201906
  3. ZANTAC [Suspect]
     Active Substance: RANITIDINE HYDROCHLORIDE
     Indication: OESOPHAGEAL SPASM
     Dosage: 150 MG, QD
     Route: 065
     Dates: start: 201701, end: 201906
  4. RANITIDINE. [Suspect]
     Active Substance: RANITIDINE
     Indication: OESOPHAGEAL SPASM
     Dosage: 150 MG, QD
     Route: 065
     Dates: start: 201906, end: 201910

REACTIONS (1)
  - Breast cancer [Unknown]
